FAERS Safety Report 25640891 (Version 1)
Quarter: 2025Q3

REPORT INFORMATION
  Report Type: Spontaneous
  Country: US (occurrence: US)
  Receive Date: 20250804
  Receipt Date: 20250804
  Transmission Date: 20251020
  Serious: No
  Sender: CALLIDITAS THERAPEUTICS AB
  Company Number: US-Calliditas-2025CAL01055

PATIENT
  Age: 38 Year
  Sex: Male

DRUGS (15)
  1. TARPEYO [Suspect]
     Active Substance: BUDESONIDE
     Indication: IgA nephropathy
     Route: 048
     Dates: start: 20250319
  2. CHLORPHENIRAMINE MALEATE [Concomitant]
     Active Substance: CHLORPHENIRAMINE MALEATE
  3. DIPHENHYDRAMINE [Concomitant]
     Active Substance: DIPHENHYDRAMINE
  4. FARXIGA [Concomitant]
     Active Substance: DAPAGLIFLOZIN PROPANEDIOL
  5. FILSPARI [Concomitant]
     Active Substance: SPARSENTAN
  6. OMEPRAZOLE [Concomitant]
     Active Substance: OMEPRAZOLE
  7. ROBAXIN [Concomitant]
     Active Substance: METHOCARBAMOL
  8. COZAAR [Concomitant]
     Active Substance: LOSARTAN POTASSIUM
  9. ALPRAZOLAM [Concomitant]
     Active Substance: ALPRAZOLAM
  10. PANTOPRAZOLE [Concomitant]
     Active Substance: PANTOPRAZOLE
  11. FAMOTIDINE [Concomitant]
     Active Substance: FAMOTIDINE
  12. FLONASE [Concomitant]
     Active Substance: FLUTICASONE PROPIONATE
  13. BENTYL [Concomitant]
     Active Substance: DICYCLOMINE HYDROCHLORIDE
  14. ESOMEPRAZOLE [Concomitant]
     Active Substance: ESOMEPRAZOLE
  15. LOSARTAN [Concomitant]
     Active Substance: LOSARTAN

REACTIONS (6)
  - Product dose omission issue [Unknown]
  - Abdominal discomfort [Recovered/Resolved]
  - Flatulence [Not Recovered/Not Resolved]
  - Palpitations [Not Recovered/Not Resolved]
  - Arthropod bite [Unknown]
  - Blister [Unknown]

NARRATIVE: CASE EVENT DATE: 20250418
